FAERS Safety Report 5198031-X (Version None)
Quarter: 2007Q1

REPORT INFORMATION
  Report Type: 
  Country: None (occurrence: None)
  Receive Date: 20070104
  Receipt Date: 20061225
  Transmission Date: 20070707
  Serious: Yes (Other)
  Sender: FDA-Public Use
  Company Number: JP-JNJFOC-20051205693

PATIENT
  Sex: Male

DRUGS (9)
  1. RISPERDAL [Suspect]
     Route: 048
  2. RISPERDAL [Suspect]
     Indication: SCHIZOPHRENIA
     Route: 048
  3. RISPERDAL [Suspect]
     Route: 048
  4. TEGRETOL [Suspect]
     Route: 048
  5. TEGRETOL [Suspect]
     Indication: SCHIZOPHRENIA
     Route: 048
  6. ZYPREXA [Suspect]
     Route: 048
  7. ZYPREXA [Suspect]
     Route: 048
  8. ZYPREXA [Suspect]
     Indication: SCHIZOPHRENIA
     Route: 048
  9. LODOPIN [Concomitant]
     Indication: SCHIZOPHRENIA

REACTIONS (1)
  - STEVENS-JOHNSON SYNDROME [None]
